FAERS Safety Report 22142939 (Version 9)
Quarter: 2024Q2

REPORT INFORMATION
  Report Type: Spontaneous
  Country: ES (occurrence: ES)
  Receive Date: 20230327
  Receipt Date: 20240607
  Transmission Date: 20240716
  Serious: Yes (Life-Threatening, Hospitalization, Other)
  Sender: FDA-Public Use
  Company Number: ES-AMAROX PHARMA GMBH-AMR2023ES00477

PATIENT
  Age: 76 Year
  Sex: Male

DRUGS (1)
  1. LEVOFLOXACIN [Suspect]
     Active Substance: LEVOFLOXACIN
     Indication: Respiratory tract infection
     Dosage: UNK
     Route: 065

REACTIONS (9)
  - Pneumonia aspiration [Recovering/Resolving]
  - Respiratory failure [Recovering/Resolving]
  - Myasthenia gravis crisis [Recovering/Resolving]
  - Dysphagia [Recovering/Resolving]
  - Eyelid ptosis [Recovered/Resolved]
  - Tachypnoea [Recovered/Resolved]
  - Muscular weakness [Recovered/Resolved]
  - Dyspnoea [Recovering/Resolving]
  - Off label use [Unknown]
